FAERS Safety Report 9549060 (Version 1)
Quarter: 2013Q3

REPORT INFORMATION
  Report Type: Spontaneous
  Country: US (occurrence: None)
  Receive Date: 20130719
  Receipt Date: 20130719
  Transmission Date: 20140515
  Serious: Yes (Hospitalization)
  Sender: FDA-Public Use
  Company Number: 1304USA011859

PATIENT
  Age: 50 Year
  Sex: Male

DRUGS (17)
  1. DULERA [Suspect]
     Indication: CHRONIC OBSTRUCTIVE PULMONARY DISEASE
     Dosage: 2 PUFFS, TWICE A DAY, INHALATION
     Dates: start: 20130417
  2. DUONEB [Concomitant]
  3. PROTONIX (PANTOPRAZOLE SODIUM) [Concomitant]
  4. CYCLOBENZAPRINE HYDROCHLORIDE [Concomitant]
  5. ACETAMINOPHEN [Concomitant]
  6. ALBUTEROL [Concomitant]
  7. MAALOX (ALUMINUM HYDROXIDE (+) MAGNESIUM HYDROXIDE) [Concomitant]
  8. BISACODYL [Concomitant]
  9. CHLORDIAZEPOXIDE [Concomitant]
  10. FERROUS SULFATE [Concomitant]
  11. FOLIC ACID [Concomitant]
  12. LACTOBACILLUS ACIDOPHILUS [Concomitant]
  13. MAGNESIUM [Concomitant]
  14. MINERALS (UNSPECIFIED) (+) VITAMINS (UNSPECIFIED) [Concomitant]
  15. FLOMAX (MORNIFLUMATE) [Concomitant]
  16. THIAMINE [Concomitant]
  17. TRAMADOL HYDROCHLORIDE [Concomitant]

REACTIONS (1)
  - Angioedema [None]
